FAERS Safety Report 5129456-6 (Version None)
Quarter: 2006Q4

REPORT INFORMATION
  Report Type: 
  Country: None (occurrence: None)
  Receive Date: 20061018
  Receipt Date: 20050415
  Transmission Date: 20070319
  Serious: Yes (Life-Threatening, Hospitalization)
  Sender: FDA-Public Use
  Company Number: PL-BRISTOL-MYERS SQUIBB COMPANY-12936340

PATIENT
  Age: 52 Year
  Sex: Female
  Weight: 146 kg

DRUGS (8)
  1. IRBESARTAN [Suspect]
     Indication: HYPERTENSION
     Dates: start: 20040520
  2. BLINDED: PLACEBO [Suspect]
     Indication: HYPERTENSION
     Dates: start: 20040520
  3. CLOPIDOGREL BISULFATE [Suspect]
     Indication: PROPHYLAXIS
     Dates: start: 20040520
  4. ASPIRIN [Suspect]
     Indication: PROPHYLAXIS
     Dates: start: 20040520
  5. BISOPROLOL FUMARATE [Concomitant]
  6. ENALAPRIL MALEATE [Concomitant]
  7. SIMVASTATIN [Concomitant]
  8. DIURETIC [Concomitant]

REACTIONS (1)
  - GASTROINTESTINAL HAEMORRHAGE [None]
